FAERS Safety Report 14853779 (Version 1)
Quarter: 2018Q2

REPORT INFORMATION
  Report Type: Other
  Country: None (occurrence: US)
  Receive Date: 20180507
  Receipt Date: 20180507
  Transmission Date: 20180711
  Serious: No
  Sender: FDA-Public Use
  Company Number: US-MEDAC PHARMA, INC.-2047315

PATIENT
  Age: 16 Year
  Sex: Male

DRUGS (8)
  1. KENALOG [Concomitant]
     Active Substance: TRIAMCINOLONE ACETONIDE
  2. LORAZEPAM. [Concomitant]
     Active Substance: LORAZEPAM
  3. DORZOLAMIDE HYDROCHLORIDE. [Concomitant]
     Active Substance: DORZOLAMIDE HYDROCHLORIDE
  4. DIFLUPREDNATE [Concomitant]
     Active Substance: DIFLUPREDNATE
  5. CYCLOPENTOLATE. [Concomitant]
     Active Substance: CYCLOPENTOLATE
  6. BRIMONIDINE, TIMOLOL [Concomitant]
  7. PREDNISOLONE. [Concomitant]
     Active Substance: PREDNISOLONE
  8. METHOTREXATE. [Suspect]
     Active Substance: METHOTREXATE
     Indication: SCLERITIS

REACTIONS (1)
  - Gastrointestinal disorder [Unknown]
